FAERS Safety Report 8035864-6 (Version None)
Quarter: 2012Q1

REPORT INFORMATION
  Report Type: 
  Country: None (occurrence: None)
  Receive Date: 20120111
  Receipt Date: 20120111
  Transmission Date: 20120608
  Serious: Yes (Life-Threatening, Hospitalization)
  Sender: FDA-Public Use
  Company Number: None

PATIENT
  Age: 17 Year
  Sex: Female
  Weight: 52.163 kg

DRUGS (1)
  1. EXCEDRIN (MIGRAINE) [Suspect]
     Dosage: TWO CAPLETS
     Route: 048
     Dates: start: 20110205, end: 20110205

REACTIONS (5)
  - PHARYNGEAL OEDEMA [None]
  - LIP SWELLING [None]
  - URTICARIA [None]
  - DYSPNOEA [None]
  - SWELLING FACE [None]
